FAERS Safety Report 25002270 (Version 2)
Quarter: 2025Q1

REPORT INFORMATION
  Report Type: Report from Study
  Country: US (occurrence: US)
  Receive Date: 20250224
  Receipt Date: 20250314
  Transmission Date: 20250408
  Serious: Yes (Hospitalization)
  Sender: BOEHRINGER INGELHEIM
  Company Number: US-BoehringerIngelheim-2023-BI-226790

PATIENT
  Age: 71 Year
  Sex: Female

DRUGS (5)
  1. OFEV [Suspect]
     Active Substance: NINTEDANIB
     Indication: Idiopathic pulmonary fibrosis
     Dates: start: 20230306
  2. OFEV [Suspect]
     Active Substance: NINTEDANIB
     Dosage: 302973,302977,  303465,402259
  3. OFEV [Suspect]
     Active Substance: NINTEDANIB
  4. IMODIUM [Suspect]
     Active Substance: LOPERAMIDE HYDROCHLORIDE
     Indication: Diarrhoea
  5. XARELTO [Concomitant]
     Active Substance: RIVAROXABAN
     Indication: Product used for unknown indication

REACTIONS (31)
  - Haematochezia [Not Recovered/Not Resolved]
  - Cardiac ablation [Unknown]
  - Abdominal pain [Not Recovered/Not Resolved]
  - Colitis ulcerative [Unknown]
  - Diarrhoea [Not Recovered/Not Resolved]
  - Feeling abnormal [Unknown]
  - Bronchospasm [Unknown]
  - Cough [Unknown]
  - Pyrexia [Unknown]
  - Dyspnoea [Unknown]
  - Urinary tract infection [Not Recovered/Not Resolved]
  - Nausea [Not Recovered/Not Resolved]
  - Abdominal pain upper [Unknown]
  - Hepatic enzyme increased [Unknown]
  - Illness [Unknown]
  - Feeling abnormal [Unknown]
  - Vomiting [Unknown]
  - Gastrointestinal pain [Unknown]
  - Endocardial varices [Unknown]
  - Hepatic mass [Unknown]
  - Osteoporosis [Unknown]
  - Dizziness [Unknown]
  - Gastrointestinal disorder [Unknown]
  - Flatulence [Unknown]
  - Blood potassium decreased [Unknown]
  - Cystitis [Unknown]
  - Muscle strain [Unknown]
  - Dehydration [Unknown]
  - Bladder cyst [Unknown]
  - Constipation [Recovered/Resolved]
  - Rectal haemorrhage [Unknown]

NARRATIVE: CASE EVENT DATE: 20230301
